FAERS Safety Report 9483205 (Version 1)
Quarter: 2013Q3

REPORT INFORMATION
  Report Type: Spontaneous
  Country: US (occurrence: US)
  Receive Date: 20130828
  Receipt Date: 20130828
  Transmission Date: 20140515
  Serious: No
  Sender: FDA-Public Use
  Company Number: US-MUTUAL PHARMACEUTICAL COMPANY, INC.-DXCY20120009

PATIENT
  Age: 29 Year
  Sex: Female
  Weight: 113.5 kg

DRUGS (4)
  1. DOXYCYCLINE CAPSULES 100 MG [Suspect]
     Indication: INFECTION
     Route: 048
     Dates: start: 2010
  2. FLUOXETINE [Concomitant]
     Indication: DEPRESSION
     Route: 048
  3. FISH OIL [Concomitant]
     Indication: DEPRESSION
     Route: 048
  4. VITAMIN D AND CALCIUM [Concomitant]
     Indication: DEPRESSION
     Route: 048

REACTIONS (3)
  - Dyspepsia [Unknown]
  - Abdominal discomfort [Unknown]
  - Photosensitivity reaction [Unknown]
